FAERS Safety Report 4617474-3 (Version None)
Quarter: 2005Q1

REPORT INFORMATION
  Report Type: 
  Country: None (occurrence: None)
  Receive Date: 20050324
  Receipt Date: 20050315
  Transmission Date: 20050727
  Serious: Yes (Hospitalization)
  Sender: FDA-Public Use
  Company Number: FR-BRISTOL-MYERS SQUIBB COMPANY-12901120

PATIENT
  Age: 67 Year
  Sex: Male

DRUGS (13)
  1. FUNGIZONE [Suspect]
     Route: 048
     Dates: start: 20050114, end: 20050121
  2. LASILIX [Suspect]
     Route: 042
     Dates: start: 20050112, end: 20050121
  3. CLAFORAN [Suspect]
     Route: 042
     Dates: start: 20041230, end: 20050127
  4. CIFLOX [Suspect]
     Route: 042
     Dates: start: 20050114, end: 20050127
  5. NEXIUM [Suspect]
     Dates: start: 20050114, end: 20050126
  6. FLAGYL [Suspect]
     Route: 048
     Dates: start: 20050116, end: 20050121
  7. SOLU-MEDROL [Concomitant]
  8. VANCOMYCIN [Concomitant]
  9. TIBERAL [Concomitant]
  10. TRIFLUCAN [Concomitant]
  11. AMIKACIN [Concomitant]
  12. RIVOTRIL [Concomitant]
  13. ACTRAPID [Concomitant]

REACTIONS (1)
  - LEUKOPENIA [None]
